FAERS Safety Report 6949386-4 (Version None)
Quarter: 2010Q3

REPORT INFORMATION
  Report Type: 
  Country: None (occurrence: None)
  Receive Date: 20100828
  Receipt Date: 20100121
  Transmission Date: 20110219
  Serious: No
  Sender: FDA-Public Use
  Company Number: US-ABBOTT-09P-163-0615972-00

PATIENT
  Sex: Female
  Weight: 71.732 kg

DRUGS (9)
  1. NIASPAN [Suspect]
     Indication: BLOOD CHOLESTEROL INCREASED
     Dates: start: 20090811
  2. NIASPAN [Suspect]
     Indication: BLOOD TRIGLYCERIDES INCREASED
  3. NIASPAN [Suspect]
     Indication: LOW DENSITY LIPOPROTEIN INCREASED
  4. NIASPAN [Suspect]
     Indication: HIGH DENSITY LIPOPROTEIN DECREASED
  5. ATENOLOL [Concomitant]
     Indication: TACHYCARDIA
     Dates: start: 19940101
  6. DIAZEPAM [Concomitant]
     Indication: MYALGIA
  7. DIAZEPAM [Concomitant]
     Indication: ANXIETY
  8. VITAMINS [Concomitant]
     Indication: ROUTINE HEALTH MAINTENANCE
  9. NASONEX [Concomitant]
     Indication: HYPERSENSITIVITY

REACTIONS (9)
  - FLUSHING [None]
  - HEART RATE INCREASED [None]
  - LACRIMATION INCREASED [None]
  - PALPITATIONS [None]
  - PARAESTHESIA [None]
  - PRURITUS [None]
  - RASH ERYTHEMATOUS [None]
  - RESTLESS LEGS SYNDROME [None]
  - RHINORRHOEA [None]
